FAERS Safety Report 16185833 (Version 1)
Quarter: 2019Q2

REPORT INFORMATION
  Report Type: Spontaneous
  Country: US (occurrence: US)
  Receive Date: 20190308
  Receipt Date: 20190308
  Transmission Date: 20190711
  Serious: No
  Sender: FDA-Public Use
  Company Number: None

PATIENT
  Age: 67 Year
  Sex: Female
  Weight: 81.65 kg

DRUGS (14)
  1. TEMAZEPAM. [Concomitant]
     Active Substance: TEMAZEPAM
  2. GUAIFENESIN. [Concomitant]
     Active Substance: GUAIFENESIN
  3. LOPERAMIDE [Concomitant]
     Active Substance: LOPERAMIDE
  4. PROBIOTICS [Concomitant]
     Active Substance: PROBIOTICS NOS
  5. AJOVY [Suspect]
     Active Substance: FREMANEZUMAB-VFRM
     Indication: MIGRAINE
     Dosage: ?          QUANTITY:225/1.5MG/ML;?
     Route: 058
     Dates: start: 20181114, end: 20181115
  6. PHENERGAN [Concomitant]
     Active Substance: PROMETHAZINE HYDROCHLORIDE
  7. HERBAL HAS [Concomitant]
  8. CYCLOBENZAPRINE. [Concomitant]
     Active Substance: CYCLOBENZAPRINE
  9. MG [Concomitant]
     Active Substance: MAGNESIUM
  10. ASPIRIN. [Concomitant]
     Active Substance: ASPIRIN
  11. BITE PLANE [Concomitant]
  12. DEXTROMETHORPHAN [Concomitant]
     Active Substance: DEXTROMETHORPHAN
  13. CA [Concomitant]
  14. CLARITIN [Concomitant]
     Active Substance: LORATADINE

REACTIONS (6)
  - Injection site pain [None]
  - Constipation [None]
  - Therapy non-responder [None]
  - Migraine [None]
  - Pain [None]
  - Diarrhoea [None]

NARRATIVE: CASE EVENT DATE: 20181115
